FAERS Safety Report 21167683 (Version 2)
Quarter: 2022Q3

REPORT INFORMATION
  Report Type: Spontaneous
  Country: US (occurrence: US)
  Receive Date: 20220803
  Receipt Date: 20220816
  Transmission Date: 20221027
  Serious: No
  Sender: FDA-Public Use
  Company Number: US-PFIZER INC-202201030983

PATIENT
  Age: 60 Year
  Sex: Female

DRUGS (1)
  1. IBRANCE [Suspect]
     Active Substance: PALBOCICLIB
     Dosage: 125 MG, CYCLIC (TAKE 1 TABLET ONCE DAILY FOR 21 DAYS, FOLLOWED BY 7 DAYS OFF)
     Dates: start: 20220629

REACTIONS (5)
  - White blood cell count decreased [Not Recovered/Not Resolved]
  - Rash pruritic [Unknown]
  - Rash erythematous [Unknown]
  - Blister [Recovering/Resolving]
  - Gait inability [Recovering/Resolving]
